FAERS Safety Report 5072180-9 (Version None)
Quarter: 2006Q3

REPORT INFORMATION
  Report Type: 
  Country: None (occurrence: None)
  Receive Date: 20060710
  Receipt Date: 20051212
  Transmission Date: 20061208
  Serious: Yes (Life-Threatening, Hospitalization, Other)
  Sender: FDA-Public Use
  Company Number: 2005US001613

PATIENT
  Age: 79 Year
  Sex: Male

DRUGS (7)
  1. ADENOSCAN [Suspect]
     Indication: SCAN MYOCARDIAL PERFUSION
     Dosage: PARENTERAL
     Route: 051
     Dates: start: 20051103, end: 20051103
  2. ALBUTEROL [Concomitant]
  3. LIPITOR [Concomitant]
  4. ASPIRIN [Concomitant]
  5. LISINOPRIL [Concomitant]
  6. METOPROLOL TARTRATE [Concomitant]
  7. ALBUTEROL [Concomitant]

REACTIONS (2)
  - ACUTE RESPIRATORY FAILURE [None]
  - ELECTROCARDIOGRAM CHANGE [None]
